FAERS Safety Report 8995007 (Version 1)
Quarter: 2012Q4

REPORT INFORMATION
  Report Type: Spontaneous
  Country: US (occurrence: None)
  Receive Date: 20121228
  Receipt Date: 20121228
  Transmission Date: 20130627
  Serious: Yes (Other)
  Sender: FDA-Public Use
  Company Number: None

PATIENT
  Age: 62 Year
  Sex: Female
  Weight: 58.97 kg

DRUGS (1)
  1. FORTEO [Suspect]
     Indication: OSTEOPOROSIS
     Dosage: 20 mcg/dose daily Subcutaneous injection
     Route: 058
     Dates: start: 20121204, end: 20121212

REACTIONS (3)
  - Arthralgia [None]
  - Dyspepsia [None]
  - Drug ineffective [None]
